FAERS Safety Report 25103525 (Version 1)
Quarter: 2025Q1

REPORT INFORMATION
  Report Type: Spontaneous
  Country: NL (occurrence: NL)
  Receive Date: 20250321
  Receipt Date: 20250321
  Transmission Date: 20250409
  Serious: Yes (Other)
  Sender: RANBAXY
  Company Number: NL-LRB-01032290

PATIENT
  Age: 58 Year
  Sex: Male
  Weight: 110 kg

DRUGS (1)
  1. PREGABALIN [Suspect]
     Active Substance: PREGABALIN
     Indication: Hernia pain
     Dosage: 1 DOSAGE FORM, BID, 2X PER DAY
     Route: 048
     Dates: start: 202501, end: 202501

REACTIONS (1)
  - Arrhythmia [Not Recovered/Not Resolved]
